FAERS Safety Report 9188969 (Version 2)
Quarter: 2013Q2

REPORT INFORMATION
  Report Type: Spontaneous
  Country: US (occurrence: US)
  Receive Date: 20130326
  Receipt Date: 20130423
  Transmission Date: 20140414
  Serious: Yes (Life-Threatening, Hospitalization)
  Sender: FDA-Public Use
  Company Number: US-B.I. PHARMACEUTICALS,INC./RIDGEFIELD-2013-BI-07219BP

PATIENT
  Age: 81 Year
  Sex: Male
  Weight: 113.4 kg

DRUGS (9)
  1. PRADAXA [Suspect]
     Indication: ATRIAL FIBRILLATION
     Dates: start: 2012
  2. PREDNISONE [Concomitant]
  3. ASA [Concomitant]
  4. ZETIA [Concomitant]
  5. LANTUS [Concomitant]
  6. LIPITOR [Concomitant]
  7. NORVASC [Concomitant]
  8. PROTONIX [Concomitant]
  9. IMDUR [Concomitant]

REACTIONS (1)
  - Haemothorax [Recovered/Resolved with Sequelae]
